FAERS Safety Report 5680098-3 (Version None)
Quarter: 2008Q1

REPORT INFORMATION
  Report Type: 
  Country: None (occurrence: None)
  Receive Date: 20080326
  Receipt Date: 20080313
  Transmission Date: 20080703
  Serious: Yes (Other)
  Sender: FDA-Public Use
  Company Number: US-BAYER-200816770NA

PATIENT
  Age: 60 Year
  Sex: Male

DRUGS (2)
  1. AVELOX [Suspect]
     Indication: ACUTE SINUSITIS
     Dosage: TOTAL DAILY DOSE: 400 MG  UNIT DOSE: 400 MG
     Route: 048
     Dates: start: 20080201, end: 20080201
  2. NASACORT [Concomitant]

REACTIONS (5)
  - ABDOMINAL DISCOMFORT [None]
  - COLITIS [None]
  - NEUROPATHY PERIPHERAL [None]
  - TENDON RUPTURE [None]
  - TENDONITIS [None]
